FAERS Safety Report 18717275 (Version 1)
Quarter: 2021Q1

REPORT INFORMATION
  Report Type: Spontaneous
  Country: CN (occurrence: CN)
  Receive Date: 20210108
  Receipt Date: 20210108
  Transmission Date: 20210419
  Serious: Yes (Other)
  Sender: FDA-Public Use
  Company Number: CN-PFIZER INC-2021008405

PATIENT
  Age: 4 Year
  Sex: Female
  Weight: 43 kg

DRUGS (3)
  1. NORMAL SALINE [Concomitant]
     Active Substance: SODIUM CHLORIDE
     Dosage: 100 ML
     Route: 041
     Dates: start: 20201208, end: 20201209
  2. NORMAL SALINE [Concomitant]
     Active Substance: SODIUM CHLORIDE
     Dosage: 500 ML
     Route: 041
     Dates: start: 20201208, end: 20201209
  3. METHOTREXATE. [Suspect]
     Active Substance: METHOTREXATE
     Indication: CHEMOTHERAPY
     Dosage: 4.2 G, 1X/DAY
     Route: 041
     Dates: start: 20201208, end: 20201209

REACTIONS (3)
  - Acute leukaemia [Unknown]
  - Condition aggravated [Unknown]
  - Lower gastrointestinal haemorrhage [Recovering/Resolving]

NARRATIVE: CASE EVENT DATE: 20201221
